FAERS Safety Report 5031750-4 (Version None)
Quarter: 2006Q2

REPORT INFORMATION
  Report Type: 
  Country: None (occurrence: None)
  Receive Date: 20060619
  Receipt Date: 20060612
  Transmission Date: 20061013
  Serious: Yes (Disabling)
  Sender: FDA-Public Use
  Company Number: 2006-05-0783

PATIENT
  Age: 3 Year
  Sex: Female
  Weight: 15 kg

DRUGS (3)
  1. AERIUS [Suspect]
     Indication: PRURITUS
     Dosage: 1/4 OF TABLET ORAL
     Route: 048
     Dates: start: 20060510, end: 20060510
  2. AERIUS [Suspect]
     Indication: RASH
     Dosage: 1/4 OF TABLET ORAL
     Route: 048
     Dates: start: 20060510, end: 20060510
  3. PARFENAC CREAM [Concomitant]

REACTIONS (4)
  - ARTHRALGIA [None]
  - FALL [None]
  - LACRIMATION INCREASED [None]
  - PAIN IN EXTREMITY [None]
